FAERS Safety Report 17803312 (Version 1)
Quarter: 2020Q2

REPORT INFORMATION
  Report Type: Spontaneous
  Country: DK (occurrence: DK)
  Receive Date: 20200519
  Receipt Date: 20200519
  Transmission Date: 20200714
  Serious: Yes (Other)
  Sender: FDA-Public Use
  Company Number: DK-PFIZER INC-2020196957

PATIENT
  Sex: Female

DRUGS (2)
  1. VENLAFAXINE HCL [Suspect]
     Active Substance: VENLAFAXINE HYDROCHLORIDE
     Indication: DEPRESSION
     Dosage: UNK
     Route: 048
     Dates: start: 2003, end: 2009
  2. VENLAFAXINE HCL [Suspect]
     Active Substance: VENLAFAXINE HYDROCHLORIDE
     Dosage: UNK
     Route: 048
     Dates: start: 201112

REACTIONS (7)
  - Intervertebral disc protrusion [Recovered/Resolved]
  - Weight fluctuation [Not Recovered/Not Resolved]
  - Paraesthesia [Recovered/Resolved]
  - Arthralgia [Unknown]
  - Weight increased [Not Recovered/Not Resolved]
  - Back pain [Unknown]
  - Mental disorder [Unknown]

NARRATIVE: CASE EVENT DATE: 2003
